FAERS Safety Report 11578039 (Version 1)
Quarter: 2015Q3

REPORT INFORMATION
  Report Type: Report from Study
  Country: US (occurrence: US)
  Receive Date: 20150930
  Receipt Date: 20150930
  Transmission Date: 20151125
  Serious: No
  Sender: FDA-Public Use
  Company Number: PHEH2013US023841

PATIENT
  Age: 19 Year
  Sex: Female
  Weight: 53.5 kg

DRUGS (3)
  1. VITAMIN D [Concomitant]
     Active Substance: CHOLECALCIFEROL
     Indication: PRODUCT USED FOR UNKNOWN INDICATION
     Route: 065
  2. AFINITOR [Suspect]
     Active Substance: EVEROLIMUS
     Indication: ANGIOMYOLIPOMA
     Dosage: 10 MG, QD
     Route: 048
     Dates: start: 20131031
  3. RAPAMYCIN [Concomitant]
     Active Substance: SIROLIMUS
     Indication: NEOPLASM
     Dosage: UNK UKN, QD
     Route: 061

REACTIONS (15)
  - Feeding disorder [Recovering/Resolving]
  - Vitamin D deficiency [Unknown]
  - Oral pain [Recovered/Resolved]
  - Stomatitis [Recovering/Resolving]
  - Iron deficiency anaemia [Unknown]
  - Eye infection [Recovered/Resolved]
  - Emotional disorder [Recovered/Resolved]
  - Vomiting [Recovering/Resolving]
  - Diarrhoea [Recovered/Resolved]
  - Menstrual disorder [Recovering/Resolving]
  - Menometrorrhagia [Recovered/Resolved]
  - Nasopharyngitis [Not Recovered/Not Resolved]
  - Depressed mood [Recovered/Resolved]
  - Fatigue [Recovered/Resolved]
  - Anaemia [Unknown]

NARRATIVE: CASE EVENT DATE: 20131107
